FAERS Safety Report 5843355-3 (Version None)
Quarter: 2008Q3

REPORT INFORMATION
  Report Type: 
  Country: None (occurrence: None)
  Receive Date: 20080813
  Receipt Date: 20071002
  Transmission Date: 20090109
  Serious: No
  Sender: FDA-Public Use
  Company Number: US-BAYER-US-2007-037377

PATIENT
  Age: 29 Year
  Sex: Male
  Weight: 113 kg

DRUGS (1)
  1. MAGNEVIST [Suspect]
     Indication: NUCLEAR MAGNETIC RESONANCE IMAGING
     Dosage: TOTAL DAILY DOSE: 20 ML  UNIT DOSE: 20 ML
     Route: 042
     Dates: start: 20071002, end: 20071002

REACTIONS (4)
  - NAUSEA [None]
  - SNEEZING [None]
  - URTICARIA [None]
  - VOMITING [None]
